FAERS Safety Report 9283136 (Version 1)
Quarter: 2013Q2

REPORT INFORMATION
  Report Type: Spontaneous
  Country: US (occurrence: US)
  Receive Date: 20130510
  Receipt Date: 20130510
  Transmission Date: 20140414
  Serious: No
  Sender: FDA-Public Use
  Company Number: US-GLAXOSMITHKLINE-A0982592A

PATIENT
  Age: 77 Year
  Sex: Female

DRUGS (10)
  1. TYKERB [Suspect]
     Indication: BREAST CANCER
     Dosage: 5TAB PER DAY
     Route: 048
     Dates: start: 20120626, end: 20120627
  2. POTASSIUM [Concomitant]
  3. SINGULAIR [Concomitant]
  4. WARFARIN [Concomitant]
  5. TRICOR [Concomitant]
  6. VITAMIN D [Concomitant]
  7. ACID REFLUX MED. [Concomitant]
  8. VESICARE [Concomitant]
  9. ALLEGRA-D [Concomitant]
  10. EYE DROPS [Concomitant]

REACTIONS (2)
  - Nausea [Recovering/Resolving]
  - Abdominal pain [Unknown]
